FAERS Safety Report 6450665-8 (Version None)
Quarter: 2009Q4

REPORT INFORMATION
  Report Type: 
  Country: None (occurrence: None)
  Receive Date: 20091120
  Receipt Date: 20091120
  Transmission Date: 20100525
  Serious: Yes (Other)
  Sender: FDA-Public Use
  Company Number: None

PATIENT
  Age: 69 Year
  Sex: Female
  Weight: 61.6892 kg

DRUGS (8)
  1. VYTORIN [Suspect]
     Indication: BLOOD CHOLESTEROL DECREASED
     Dosage: 1 TABLET DAILY PO
     Route: 048
     Dates: start: 20091114, end: 20091114
  2. CENTRUM SILVER ULTRA WOMEN'S MEGAVITAMIN [Concomitant]
  3. ASPIRIN [Concomitant]
  4. ATENOLOL [Concomitant]
  5. HYDROCHLOROTHIAZIDE TAB [Concomitant]
  6. NIACIN [Concomitant]
  7. LOVAZA [Concomitant]
  8. PROAIR HFA [Concomitant]

REACTIONS (2)
  - HYPERSENSITIVITY [None]
  - REFUSAL OF TREATMENT BY PATIENT [None]
